FAERS Safety Report 7809647-3 (Version None)
Quarter: 2011Q4

REPORT INFORMATION
  Report Type: 
  Country: None (occurrence: None)
  Receive Date: 20111012
  Receipt Date: 20110930
  Transmission Date: 20120403
  Serious: Yes (Hospitalization, Other)
  Sender: FDA-Public Use
  Company Number: US-BRISTOL-MYERS SQUIBB COMPANY-16051484

PATIENT
  Age: 68 Year
  Sex: Male

DRUGS (20)
  1. ATENOLOL [Concomitant]
     Route: 048
  2. FLOMAX [Concomitant]
     Dosage: CAPSULE
  3. SIMVASTATIN [Concomitant]
     Dosage: TABS
     Route: 048
  4. GLUCOTROL XL [Concomitant]
     Dosage: EXTENDED RELEASE TABS
  5. TYLENOL-500 [Concomitant]
     Dosage: TABS
  6. CELEXA [Concomitant]
     Dosage: TABS
  7. METOPROLOL TARTRATE [Concomitant]
     Dosage: TABS
  8. DITROPAN [Concomitant]
     Dosage: TABS
     Route: 048
  9. LISINOPRIL [Concomitant]
  10. RISPERDAL [Concomitant]
     Dosage: QPM
  11. ALPHAGAN [Concomitant]
     Dosage: 15% SOLN 1DF=2 GTTS
     Route: 048
  12. AMBIEN [Concomitant]
     Dosage: TABS
  13. COUMADIN [Suspect]
     Indication: ATRIAL FIBRILLATION
     Dosage: BEFORE FEB2011, PRESENT: 7.5 MG TAB ONCE A DAY
     Route: 048
  14. TIMOLOL MALEATE [Concomitant]
     Dosage: 1DF=2 GTTS 0.% SOLN
  15. METFORMIN HCL [Concomitant]
     Dosage: 1-1/2 TABS,BID
  16. TRIAMTERENE [Concomitant]
     Route: 048
  17. HYDROCHLOROTHIAZIDE [Concomitant]
  18. CARDIZEM [Concomitant]
     Dosage: TABS
  19. ACTOS [Concomitant]
     Dosage: TABS
  20. ZOLPIDEM [Concomitant]
     Route: 048

REACTIONS (4)
  - ISCHAEMIC STROKE [None]
  - WEIGHT INCREASED [None]
  - ANGINA PECTORIS [None]
  - MEDIASTINAL MASS [None]
